FAERS Safety Report 9513642 (Version 2)
Quarter: 2013Q4

REPORT INFORMATION
  Report Type: Spontaneous
  Country: HU (occurrence: HU)
  Receive Date: 20130910
  Receipt Date: 20131016
  Transmission Date: 20140711
  Serious: Yes (Hospitalization)
  Sender: FDA-Public Use
  Company Number: HU-GLAXOSMITHKLINE-B0921379A

PATIENT
  Age: 40 Year
  Sex: Female

DRUGS (3)
  1. REVOLADE [Suspect]
     Indication: PRODUCT USED FOR UNKNOWN INDICATION
     Dosage: 75MG PER DAY
     Route: 065
     Dates: start: 201305, end: 20130716
  2. MEDROL [Concomitant]
     Dosage: 15MG PER DAY
     Route: 065
     Dates: start: 20130711, end: 20130716
  3. POTASSIUM [Concomitant]
     Route: 065

REACTIONS (3)
  - Cerebrovascular accident [Recovering/Resolving]
  - Thrombocytopenia [Unknown]
  - Epistaxis [Unknown]
